FAERS Safety Report 7507279-8 (Version None)
Quarter: 2011Q2

REPORT INFORMATION
  Report Type: 
  Country: None (occurrence: None)
  Receive Date: 20110526
  Receipt Date: 20110518
  Transmission Date: 20111010
  Serious: Yes (Hospitalization)
  Sender: FDA-Public Use
  Company Number: BR-MEDIMMUNE-MEDI-0013223

PATIENT
  Sex: Male
  Weight: 7.17 kg

DRUGS (2)
  1. SYNAGIS [Suspect]
  2. SYNAGIS [Suspect]
     Indication: CARDIAC DISORDER
     Dosage: 3 DOSES IN 2010
     Route: 030
     Dates: start: 20100501

REACTIONS (8)
  - CYST [None]
  - INFLUENZA [None]
  - RHINORRHOEA [None]
  - PNEUMONIA [None]
  - BRONCHITIS [None]
  - FATIGUE [None]
  - LOWER RESPIRATORY TRACT INFECTION [None]
  - CEREBRAL ATROPHY [None]
